FAERS Safety Report 19034033 (Version 2)
Quarter: 2021Q2

REPORT INFORMATION
  Report Type: Spontaneous
  Country: US (occurrence: US)
  Receive Date: 20210319
  Receipt Date: 20210504
  Transmission Date: 20210717
  Serious: Yes (Hospitalization, Other)
  Sender: FDA-Public Use
  Company Number: US-PFIZER INC-2021277374

PATIENT
  Age: 66 Year
  Sex: Male

DRUGS (2)
  1. INLYTA [Suspect]
     Active Substance: AXITINIB
     Dosage: 5 MG, TWICE DAILY
     Route: 048
     Dates: start: 202101
  2. INLYTA [Suspect]
     Active Substance: AXITINIB
     Dosage: 5 MG, TWICE DAILY
     Route: 048
     Dates: end: 202010

REACTIONS (6)
  - Haemorrhage [Unknown]
  - Myocardial infarction [Unknown]
  - Arthralgia [Unknown]
  - Haematemesis [Unknown]
  - Cardiac failure congestive [Unknown]
  - Fall [Recovering/Resolving]

NARRATIVE: CASE EVENT DATE: 202101
